FAERS Safety Report 17847683 (Version 46)
Quarter: 2025Q2

REPORT INFORMATION
  Report Type: Report from Study
  Country: US (occurrence: US)
  Receive Date: 20200601
  Receipt Date: 20250528
  Transmission Date: 20250716
  Serious: Yes (Hospitalization, Other)
  Sender: TAKEDA
  Company Number: US-SHIRE-US202017774

PATIENT
  Age: 50 Year
  Sex: Male
  Weight: 71 kg

DRUGS (107)
  1. HUMAN IMMUNOGLOBULIN G [Suspect]
     Active Substance: HUMAN IMMUNOGLOBULIN G
     Indication: Immunodeficiency common variable
     Dosage: 25 GRAM, 1/WEEK
     Dates: start: 20170613
  2. HUMAN IMMUNOGLOBULIN G [Suspect]
     Active Substance: HUMAN IMMUNOGLOBULIN G
     Dosage: 35 GRAM, Q2WEEKS
     Dates: start: 20181029
  3. HUMAN IMMUNOGLOBULIN G [Suspect]
     Active Substance: HUMAN IMMUNOGLOBULIN G
     Dosage: 20 GRAM, 1/WEEK
  4. HUMAN IMMUNOGLOBULIN G [Suspect]
     Active Substance: HUMAN IMMUNOGLOBULIN G
     Dosage: 35 GRAM, Q2WEEKS
     Dates: start: 20181031
  5. HUMAN IMMUNOGLOBULIN G [Suspect]
     Active Substance: HUMAN IMMUNOGLOBULIN G
     Dosage: 17 GRAM, Q2WEEKS
  6. HUMAN IMMUNOGLOBULIN G [Suspect]
     Active Substance: HUMAN IMMUNOGLOBULIN G
     Dosage: 20 GRAM, 1/WEEK
  7. HUMAN IMMUNOGLOBULIN G [Suspect]
     Active Substance: HUMAN IMMUNOGLOBULIN G
     Dosage: 22 GRAM, 1/WEEK
  8. HUMAN IMMUNOGLOBULIN G [Suspect]
     Active Substance: HUMAN IMMUNOGLOBULIN G
     Dosage: UNK UNK, 1/WEEK
     Dates: end: 20250320
  9. HUMAN IMMUNOGLOBULIN G [Suspect]
     Active Substance: HUMAN IMMUNOGLOBULIN G
     Dosage: 22 GRAM, 1/WEEK
  10. XEMBIFY [Suspect]
     Active Substance: HUMAN IMMUNOGLOBULIN G
     Indication: Product used for unknown indication
  11. DUPIXENT [Suspect]
     Active Substance: DUPILUMAB
     Indication: Product used for unknown indication
  12. ACETAMINOPHEN [Concomitant]
     Active Substance: ACETAMINOPHEN
  13. DIPHENHYDRAMINE [Concomitant]
     Active Substance: DIPHENHYDRAMINE
  14. EPINEPHRINE [Concomitant]
     Active Substance: EPINEPHRINE
  15. Lmx [Concomitant]
  16. GLIPIZIDE [Concomitant]
     Active Substance: GLIPIZIDE
  17. SPIRIVA RESPIMAT [Concomitant]
     Active Substance: TIOTROPIUM BROMIDE
  18. METFORMIN [Concomitant]
     Active Substance: METFORMIN HYDROCHLORIDE
  19. DELSYM [Concomitant]
     Active Substance: DEXTROMETHORPHAN
  20. ZOFRAN [Concomitant]
     Active Substance: ONDANSETRON HYDROCHLORIDE
  21. PANTOPRAZOLE [Concomitant]
     Active Substance: PANTOPRAZOLE
  22. KETOCONAZOLE [Concomitant]
     Active Substance: KETOCONAZOLE
  23. ADVAIR HFA [Concomitant]
     Active Substance: FLUTICASONE PROPIONATE\SALMETEROL XINAFOATE
  24. ATIVAN [Concomitant]
     Active Substance: LORAZEPAM
  25. ZYRTEC [Concomitant]
     Active Substance: CETIRIZINE HYDROCHLORIDE
  26. MAGNESIUM OXIDE [Concomitant]
     Active Substance: MAGNESIUM OXIDE
  27. EMGALITY [Concomitant]
     Active Substance: GALCANEZUMAB-GNLM
  28. BACLOFEN [Concomitant]
     Active Substance: BACLOFEN
  29. TORSEMIDE [Concomitant]
     Active Substance: TORSEMIDE
  30. PREDNISONE [Concomitant]
     Active Substance: PREDNISONE
  31. FLUDROCORTISONE [Concomitant]
     Active Substance: FLUDROCORTISONE
  32. DILTIAZEM [Concomitant]
     Active Substance: DILTIAZEM
  33. NORCO [Concomitant]
     Active Substance: ACETAMINOPHEN\HYDROCODONE BITARTRATE
  34. VITAMIN D3 [Concomitant]
     Active Substance: CHOLECALCIFEROL
  35. BENZONATATE [Concomitant]
     Active Substance: BENZONATATE
  36. SINGULAIR [Concomitant]
     Active Substance: MONTELUKAST SODIUM
     Indication: Product used for unknown indication
  37. FAMOTIDINE [Concomitant]
     Active Substance: FAMOTIDINE
  38. MIDODRINE [Concomitant]
     Active Substance: MIDODRINE
  39. CRESTOR [Concomitant]
     Active Substance: ROSUVASTATIN CALCIUM
  40. MOVANTIK [Concomitant]
     Active Substance: NALOXEGOL OXALATE
  41. SPIRONOLACTONE [Concomitant]
     Active Substance: SPIRONOLACTONE
  42. ALBUTEROL SULFATE [Concomitant]
     Active Substance: ALBUTEROL SULFATE
  43. PRADAXA [Concomitant]
     Active Substance: DABIGATRAN ETEXILATE MESYLATE
  44. FIORICET [Concomitant]
     Active Substance: ACETAMINOPHEN\BUTALBITAL\CAFFEINE
  45. PROAIR HFA [Concomitant]
     Active Substance: ALBUTEROL SULFATE
  46. POTASSIUM CHLORIDE [Concomitant]
     Active Substance: POTASSIUM CHLORIDE
  47. LIDOCAINE [Concomitant]
     Active Substance: LIDOCAINE
  48. BACTRIM [Concomitant]
     Active Substance: SULFAMETHOXAZOLE\TRIMETHOPRIM
  49. CHLORHEXIDINE GLUCONATE [Concomitant]
     Active Substance: CHLORHEXIDINE GLUCONATE
  50. CIPROFLOXACIN [Concomitant]
     Active Substance: CIPROFLOXACIN
  51. LEVALBUTEROL [Concomitant]
     Active Substance: LEVALBUTEROL
  52. ACYCLOVIR [Concomitant]
     Active Substance: ACYCLOVIR
  53. CITALOPRAM [Concomitant]
     Active Substance: CITALOPRAM
  54. MEGESTROL ACETATE [Concomitant]
     Active Substance: MEGESTROL ACETATE
  55. SYMBICORT [Concomitant]
     Active Substance: BUDESONIDE\FORMOTEROL FUMARATE DIHYDRATE
  56. CYCLOBENZAPRINE [Concomitant]
     Active Substance: CYCLOBENZAPRINE
  57. BUDESONIDE [Concomitant]
     Active Substance: BUDESONIDE
  58. PROMETHAZINE [Concomitant]
     Active Substance: PROMETHAZINE HYDROCHLORIDE
  59. OXYCODONE [Concomitant]
     Active Substance: OXYCODONE
  60. SUMATRIPTAN [Concomitant]
     Active Substance: SUMATRIPTAN
  61. FLUTICASONE PROPIONATE [Concomitant]
     Active Substance: FLUTICASONE PROPIONATE
  62. PATADAY [Concomitant]
     Active Substance: OLOPATADINE HYDROCHLORIDE
  63. PULMICORT TURBUHALER [Concomitant]
     Active Substance: BUDESONIDE
  64. ZANAFLEX [Concomitant]
     Active Substance: TIZANIDINE HYDROCHLORIDE
  65. BENADRYL [Concomitant]
     Active Substance: DIPHENHYDRAMINE HYDROCHLORIDE
  66. HIZENTRA [Concomitant]
     Active Substance: HUMAN IMMUNOGLOBULIN G
  67. PERFOROMIST [Concomitant]
     Active Substance: FORMOTEROL FUMARATE DIHYDRATE
  68. TYLENOL [Concomitant]
     Active Substance: ACETAMINOPHEN
  69. DIAZEPAM [Concomitant]
     Active Substance: DIAZEPAM
  70. AZELASTINE [Concomitant]
     Active Substance: AZELASTINE
  71. XOPENEX [Concomitant]
     Active Substance: LEVALBUTEROL HYDROCHLORIDE
  72. POTASSIUM BICARBONATE [Concomitant]
     Active Substance: POTASSIUM BICARBONATE
  73. ALBUTEROL [Concomitant]
     Active Substance: ALBUTEROL
  74. MAGNESIUM [Concomitant]
     Active Substance: MAGNESIUM
  75. HYDROCODONE [Concomitant]
     Active Substance: HYDROCODONE
  76. SERTRALINE HYDROCHLORIDE [Concomitant]
     Active Substance: SERTRALINE HYDROCHLORIDE
  77. ELIQUIS [Concomitant]
     Active Substance: APIXABAN
  78. LYRICA [Concomitant]
     Active Substance: PREGABALIN
  79. REGLAN [Concomitant]
     Active Substance: METOCLOPRAMIDE HYDROCHLORIDE
  80. TRAMADOL [Concomitant]
     Active Substance: TRAMADOL
  81. IBUPROFEN [Concomitant]
     Active Substance: IBUPROFEN
     Indication: Product used for unknown indication
  82. CODEINE PHOSPHATE AND GUAIFENESIN [Concomitant]
     Active Substance: CODEINE PHOSPHATE\GUAIFENESIN
  83. CYMBALTA [Concomitant]
     Active Substance: DULOXETINE HYDROCHLORIDE
  84. NEURONTIN [Concomitant]
     Active Substance: GABAPENTIN
  85. DULERA [Concomitant]
     Active Substance: FORMOTEROL FUMARATE DIHYDRATE\MOMETASONE FUROATE
  86. PSEUDOEPHEDRINE [Concomitant]
     Active Substance: PSEUDOEPHEDRINE
  87. ACETAMINOPHEN\HYDROCODONE [Concomitant]
     Active Substance: ACETAMINOPHEN\HYDROCODONE
  88. FENOFIBRATE [Concomitant]
     Active Substance: FENOFIBRATE
  89. METHOCARBAMOL [Concomitant]
     Active Substance: METHOCARBAMOL
  90. FLUDROCORTISONE ACETATE [Concomitant]
     Active Substance: FLUDROCORTISONE ACETATE
  91. METFORMIN HYDROCHLORIDE [Concomitant]
     Active Substance: METFORMIN HYDROCHLORIDE
  92. DILTIAZEM HYDROCHLORIDE [Concomitant]
     Active Substance: DILTIAZEM HYDROCHLORIDE
  93. MIDODRINE HYDROCHLORIDE [Concomitant]
     Active Substance: MIDODRINE HYDROCHLORIDE
  94. VITAMIN C [Concomitant]
     Active Substance: ASCORBIC ACID
  95. LINZESS [Concomitant]
     Active Substance: LINACLOTIDE
  96. KRILL OIL [Concomitant]
     Active Substance: DIETARY SUPPLEMENT\KRILL OIL
  97. VITAMIN E [Concomitant]
     Active Substance: .ALPHA.-TOCOPHEROL
  98. B active [Concomitant]
  99. DIPHENHYDRAMINE HYDROCHLORIDE [Concomitant]
     Active Substance: DIPHENHYDRAMINE HYDROCHLORIDE
  100. SELENIUM [Concomitant]
     Active Substance: SELENIUM
  101. TEMAZEPAM [Concomitant]
     Active Substance: TEMAZEPAM
  102. METAXALONE [Concomitant]
     Active Substance: METAXALONE
  103. CYCLOBENZAPRINE HYDROCHLORIDE [Concomitant]
     Active Substance: CYCLOBENZAPRINE HYDROCHLORIDE
  104. AIRSUPRA [Concomitant]
     Active Substance: ALBUTEROL SULFATE\BUDESONIDE
  105. AZELASTINE HYDROCHLORIDE [Concomitant]
     Active Substance: AZELASTINE HYDROCHLORIDE
  106. OXYCODONE HYDROCHLORIDE [Concomitant]
     Active Substance: OXYCODONE HYDROCHLORIDE
  107. PROMETHAZINE HYDROCHLORIDE [Concomitant]
     Active Substance: PROMETHAZINE HYDROCHLORIDE

REACTIONS (47)
  - Lower limb fracture [Unknown]
  - Fall [Unknown]
  - Haematoma [Unknown]
  - Pneumonia [Unknown]
  - Nephrolithiasis [Unknown]
  - Clostridium difficile colitis [Unknown]
  - Impaired gastric emptying [Unknown]
  - Thrombosis [Unknown]
  - Infusion related reaction [Unknown]
  - COVID-19 [Recovered/Resolved]
  - Bronchitis [Not Recovered/Not Resolved]
  - Sensitive skin [Unknown]
  - Skin discolouration [Unknown]
  - Dysphagia [Unknown]
  - Illness [Unknown]
  - Infection [Unknown]
  - Gait inability [Unknown]
  - Post procedural discharge [Unknown]
  - Speech disorder [Unknown]
  - Asthma [Unknown]
  - Post procedural infection [Unknown]
  - Drug hypersensitivity [Unknown]
  - Inappropriate schedule of product administration [Unknown]
  - Product dose omission issue [Unknown]
  - Product prescribing issue [Unknown]
  - Rib fracture [Unknown]
  - Skin infection [Unknown]
  - Herpes zoster [Unknown]
  - Insurance issue [Unknown]
  - Sinusitis [Recovering/Resolving]
  - Infusion site haemorrhage [Unknown]
  - Contusion [Unknown]
  - Injection site warmth [Unknown]
  - Infusion site warmth [Recovered/Resolved]
  - Injection site reaction [Unknown]
  - Anaemia [Unknown]
  - Swelling [Recovered/Resolved]
  - Feeling hot [Unknown]
  - Infusion site bruising [Unknown]
  - Pain [Unknown]
  - Infusion site erythema [Recovered/Resolved]
  - Infusion site swelling [Recovered/Resolved]
  - Infusion site pruritus [Unknown]
  - Infusion site pain [Recovered/Resolved]
  - Headache [Recovered/Resolved]
  - Fatigue [Recovered/Resolved]
  - Malaise [Unknown]

NARRATIVE: CASE EVENT DATE: 20210814
